FAERS Safety Report 13822761 (Version 1)
Quarter: 2017Q3

REPORT INFORMATION
  Report Type: Report from Study
  Country: TR (occurrence: TR)
  Receive Date: 20170801
  Receipt Date: 20170801
  Transmission Date: 20171127
  Serious: Yes (Other)
  Sender: FDA-Public Use
  Company Number: PHHY2017TR112974

PATIENT
  Age: 19 Year
  Sex: Male
  Weight: 63 kg

DRUGS (9)
  1. ASPIRIN. [Concomitant]
     Active Substance: ASPIRIN
     Indication: PRODUCT USED FOR UNKNOWN INDICATION
     Route: 065
  2. DIGOXIN. [Concomitant]
     Active Substance: DIGOXIN
     Indication: PRODUCT USED FOR UNKNOWN INDICATION
     Route: 065
  3. DILATREND [Concomitant]
     Active Substance: CARVEDILOL
     Indication: PRODUCT USED FOR UNKNOWN INDICATION
     Route: 065
  4. ONEPTUS [Suspect]
     Active Substance: SACUBITRIL\VALSARTAN
     Dosage: 1 DF (49MG SACUBITRIL/51MG VALSARTAN), BID
     Route: 048
  5. AVICAP [Concomitant]
     Indication: PRODUCT USED FOR UNKNOWN INDICATION
     Route: 065
  6. COENZYME Q10 [Concomitant]
     Active Substance: UBIDECARENONE
     Indication: PRODUCT USED FOR UNKNOWN INDICATION
     Route: 065
  7. ONEPTUS [Suspect]
     Active Substance: SACUBITRIL\VALSARTAN
     Dosage: DOSE REDUCED
     Route: 065
  8. CORALAN [Concomitant]
     Active Substance: IVABRADINE HYDROCHLORIDE
     Indication: PRODUCT USED FOR UNKNOWN INDICATION
     Route: 065
  9. ONEPTUS [Suspect]
     Active Substance: SACUBITRIL\VALSARTAN
     Indication: PRODUCT USED FOR UNKNOWN INDICATION
     Dosage: 1 DF (49MG SACUBITRIL/51MG VALSARTAN), BID
     Route: 048
     Dates: start: 201612

REACTIONS (10)
  - Hypotension [Not Recovered/Not Resolved]
  - Cough [Recovered/Resolved]
  - Infection [Unknown]
  - Dizziness [Unknown]
  - Nausea [Recovered/Resolved]
  - Cardiac failure [Unknown]
  - Visual impairment [Unknown]
  - Drug ineffective [Unknown]
  - Loss of consciousness [Unknown]
  - Alopecia [Recovered/Resolved]

NARRATIVE: CASE EVENT DATE: 201612
